FAERS Safety Report 17456153 (Version 2)
Quarter: 2022Q1

REPORT INFORMATION
  Report Type: Spontaneous
  Country: BR (occurrence: BR)
  Receive Date: 20200225
  Receipt Date: 20220125
  Transmission Date: 20220423
  Serious: Yes (Other)
  Sender: FDA-Public Use
  Company Number: BR-TEVA-2020-BR-1190956

PATIENT
  Age: 64 Year
  Sex: Female
  Weight: 83.5 kg

DRUGS (5)
  1. OXALIPLATIN [Suspect]
     Active Substance: OXALIPLATIN
     Indication: Rectal neoplasm
     Route: 065
     Dates: start: 202001
  2. LOSARTAN [Concomitant]
     Active Substance: LOSARTAN
  3. DIOSMIN [Concomitant]
     Active Substance: DIOSMIN
  4. SERTRALINE [Concomitant]
     Active Substance: SERTRALINE HYDROCHLORIDE
  5. METFORMIN [Concomitant]
     Active Substance: METFORMIN HYDROCHLORIDE

REACTIONS (2)
  - Neuropathy peripheral [Recovered/Resolved]
  - Respiratory distress [Recovered/Resolved]

NARRATIVE: CASE EVENT DATE: 20200212
